FAERS Safety Report 13725986 (Version 1)
Quarter: 2017Q3

REPORT INFORMATION
  Report Type: Spontaneous
  Country: US (occurrence: US)
  Receive Date: 20170706
  Receipt Date: 20170706
  Transmission Date: 20171127
  Serious: No
  Sender: FDA-Public Use
  Company Number: US-BAYER-2017-128886

PATIENT
  Age: 71 Year
  Sex: Female

DRUGS (3)
  1. CIPROFLOXACIN. [Suspect]
     Active Substance: CIPROFLOXACIN
     Indication: CYSTOSCOPY
     Dosage: UNK
     Dates: start: 201604
  2. CIPROFLOXACIN. [Suspect]
     Active Substance: CIPROFLOXACIN
     Indication: URETHRAL STENT INSERTION
  3. PEMBROLIZUMAB. [Concomitant]
     Active Substance: PEMBROLIZUMAB
     Indication: METASTASES TO LIVER
     Dosage: 2 MG/KG, Q3WK

REACTIONS (1)
  - Rash [Recovered/Resolved]

NARRATIVE: CASE EVENT DATE: 201604
